FAERS Safety Report 5794290-0 (Version None)
Quarter: 2008Q2

REPORT INFORMATION
  Report Type: 
  Country: None (occurrence: None)
  Receive Date: 20080625
  Receipt Date: 20080613
  Transmission Date: 20081010
  Serious: Yes (Other)
  Sender: FDA-Public Use
  Company Number: 2008-02179

PATIENT
  Age: 51 Year
  Sex: Female
  Weight: 75.1 kg

DRUGS (1)
  1. VELCADE [Suspect]
     Indication: ADENOID CYSTIC CARCINOMA
     Dosage: 1.3 MG/M2, INTRAVENOUS
     Route: 042
     Dates: start: 20080401

REACTIONS (3)
  - PAIN [None]
  - PYREXIA [None]
  - RASH [None]
